FAERS Safety Report 8371878-4 (Version None)
Quarter: 2012Q2

REPORT INFORMATION
  Report Type: 
  Country: None (occurrence: None)
  Receive Date: 20120518
  Receipt Date: 20120511
  Transmission Date: 20120825
  Serious: Yes (Hospitalization, Other)
  Sender: FDA-Public Use
  Company Number: IE-ROCHE-1068657

PATIENT
  Sex: Male

DRUGS (1)
  1. LARIAM [Suspect]
     Indication: PROPHYLAXIS
     Route: 048
     Dates: start: 20050901, end: 20060601

REACTIONS (12)
  - SLEEP DISORDER [None]
  - MUSCLE SPASMS [None]
  - PSYCHOTIC DISORDER [None]
  - ANXIETY [None]
  - SELF INJURIOUS BEHAVIOUR [None]
  - WEIGHT DECREASED [None]
  - DEHYDRATION [None]
  - HEADACHE [None]
  - DECREASED APPETITE [None]
  - ABNORMAL DREAMS [None]
  - DIARRHOEA [None]
  - PARAESTHESIA [None]
